FAERS Safety Report 7106188-6 (Version None)
Quarter: 2010Q4

REPORT INFORMATION
  Report Type: 
  Country: None (occurrence: None)
  Receive Date: 20101116
  Receipt Date: 20101110
  Transmission Date: 20110411
  Serious: Yes (Life-Threatening, Hospitalization, Other)
  Sender: FDA-Public Use
  Company Number: DE-BAYER-201043666GPV

PATIENT
  Age: 61 Year
  Sex: Male
  Weight: 70 kg

DRUGS (12)
  1. AVELOX [Suspect]
     Indication: PNEUMONIA
     Dosage: TOTAL DAILY DOSE: 400 MG  UNIT DOSE: 400 MG
     Route: 048
     Dates: start: 20100729, end: 20100805
  2. CYCLOPHOSPHAMIDE [Concomitant]
     Indication: CHEMOTHERAPY
     Dosage: DAY 1 -3
     Dates: start: 20100823, end: 20100825
  3. FLUDARABINE PHOSPHATE [Concomitant]
     Indication: CHEMOTHERAPY
     Dosage: DAY 1-3
     Dates: start: 20100823, end: 20100825
  4. NEUPOGEN [Concomitant]
     Indication: CHEMOTHERAPY
     Route: 058
     Dates: start: 20100827, end: 20100901
  5. ARIXTRA [Concomitant]
     Indication: ANTICOAGULANT THERAPY
     Dosage: 2.5
     Route: 058
  6. KIOVIG [Concomitant]
     Dates: start: 20100818, end: 20100819
  7. KIOVIG [Concomitant]
     Dates: start: 20100822, end: 20100822
  8. KIOVIG [Concomitant]
     Dates: start: 20100821, end: 20100821
  9. MIDAZOLAM HCL [Concomitant]
     Route: 042
     Dates: start: 20100820, end: 20100820
  10. XYLOCAINE [Concomitant]
     Indication: LOCAL ANAESTHESIA
     Dosage: 1%
     Dates: start: 20100820, end: 20100820
  11. XYLOCAINE [Concomitant]
     Dosage: 1%
     Dates: start: 20100820, end: 20100820
  12. GENTAMICIN [Concomitant]
     Dosage: LOCAL
     Dates: start: 20100820

REACTIONS (3)
  - ANGIOEDEMA [None]
  - HEADACHE [None]
  - HERPES ZOSTER [None]
